FAERS Safety Report 9255159 (Version 1)
Quarter: 2013Q1

REPORT INFORMATION
  Report Type: Spontaneous
  Country: US (occurrence: None)
  Receive Date: 20121212
  Receipt Date: 20121212
  Transmission Date: 20140127
  Serious: No
  Sender: FDA-Public Use
  Company Number: 1209USA000504

PATIENT
  Age: 53 Year
  Sex: Male
  Weight: 83.92 kg

DRUGS (8)
  1. VICTRELIS [Suspect]
     Indication: HEPATITIS C
     Dosage: 800MG, Q8H, ORAL
     Route: 048
     Dates: start: 20120803
  2. REBETOL [Suspect]
     Indication: HEPATITIS C
     Dosage: UNK, ORAL
     Route: 048
  3. PEGASYS [Concomitant]
  4. ALDACTONE TABLETS (SPIRONOLACTONE) [Concomitant]
  5. CORGARD (NADOLOL) [Concomitant]
  6. LACTULOSE (LACTULOSE) [Concomitant]
  7. VITAMINS (UNSPECIFIED) (VITAMINS (UNSPECIFIED)) [Concomitant]
  8. THIAMINE (THIAMINE) [Concomitant]

REACTIONS (1)
  - Red blood cell count decreased [None]
